FAERS Safety Report 7628777-2 (Version None)
Quarter: 2011Q3

REPORT INFORMATION
  Report Type: 
  Country: None (occurrence: None)
  Receive Date: 20110722
  Receipt Date: 20110712
  Transmission Date: 20111222
  Serious: Yes (Hospitalization)
  Sender: FDA-Public Use
  Company Number: GB-ABBOTT-11P-167-0838730-00

PATIENT
  Sex: Female

DRUGS (2)
  1. SIBUTRAMINE HYDROCHLORIDE MONOHYDRATE [Suspect]
     Route: 048
     Dates: start: 20091001, end: 20100113
  2. SIBUTRAMINE HYDROCHLORIDE MONOHYDRATE [Suspect]
     Indication: WEIGHT DECREASED
     Route: 048
     Dates: start: 20071001, end: 20080301

REACTIONS (3)
  - MYOCARDIAL INFARCTION [None]
  - MALAISE [None]
  - PRINZMETAL ANGINA [None]
